FAERS Safety Report 7370991-8 (Version None)
Quarter: 2011Q1

REPORT INFORMATION
  Report Type: 
  Country: None (occurrence: None)
  Receive Date: 20110324
  Receipt Date: 20110310
  Transmission Date: 20110831
  Serious: No
  Sender: FDA-Public Use
  Company Number: US-BIOGENIDEC-2011BI010483

PATIENT
  Sex: Female

DRUGS (2)
  1. AVONEX [Suspect]
     Indication: MULTIPLE SCLEROSIS
     Route: 030
     Dates: start: 20091220
  2. AMPYRA [Concomitant]

REACTIONS (4)
  - HYPOAESTHESIA [None]
  - FOOT FRACTURE [None]
  - TYPE 2 DIABETES MELLITUS [None]
  - MULTIPLE SCLEROSIS [None]
